FAERS Safety Report 7652624-6 (Version None)
Quarter: 2011Q3

REPORT INFORMATION
  Report Type: 
  Country: None (occurrence: None)
  Receive Date: 20110803
  Receipt Date: 20110725
  Transmission Date: 20111222
  Serious: Yes (Other)
  Sender: FDA-Public Use
  Company Number: TR-BRISTOL-MYERS SQUIBB COMPANY-15921596

PATIENT
  Age: 48 Year
  Sex: Male

DRUGS (9)
  1. AMOXICILLIN [Suspect]
  2. HYDROXYZINE HCL [Suspect]
  3. ERYTHROMYCIN [Suspect]
  4. CETIRIZINE HCL [Suspect]
     Route: 048
  5. SULTAMICILLIN [Suspect]
  6. LANSOPRAZOLE [Suspect]
  7. IOHEXOL [Suspect]
  8. PSEUDOEPHEDRINE HCL [Suspect]
  9. TETRACYCLINE HCL [Suspect]

REACTIONS (1)
  - ECZEMA [None]
